FAERS Safety Report 9937444 (Version 2)
Quarter: 2014Q1

REPORT INFORMATION
  Report Type: Spontaneous
  Country: US (occurrence: US)
  Receive Date: 20140303
  Receipt Date: 20140318
  Transmission Date: 20141002
  Serious: Yes (Hospitalization)
  Sender: FDA-Public Use
  Company Number: US-BIOGENIDEC-2014BI017921

PATIENT
  Age: 42 Year
  Sex: Female

DRUGS (9)
  1. TYSABRI [Suspect]
     Indication: MULTIPLE SCLEROSIS
     Route: 042
     Dates: start: 20130916, end: 20140204
  2. TIZANIDINE [Concomitant]
     Indication: MUSCLE SPASTICITY
     Route: 048
     Dates: start: 201402
  3. TRAMADOL [Concomitant]
     Route: 048
     Dates: start: 201402
  4. DIAZEPAM [Concomitant]
     Indication: ANXIETY
     Route: 048
     Dates: start: 201402
  5. DIAZEPAM [Concomitant]
     Indication: MUSCLE SPASMS
     Route: 048
     Dates: start: 201402
  6. DIAZEPAM [Concomitant]
     Indication: SLEEP DISORDER
     Route: 048
     Dates: start: 201402
  7. VENTOLIN HFA [Concomitant]
     Indication: ASTHMA
     Route: 055
  8. ELAVIL [Concomitant]
     Route: 048
  9. VITAMIN D [Concomitant]
     Route: 048

REACTIONS (3)
  - Multiple sclerosis relapse [Recovered/Resolved]
  - Multiple sclerosis [Unknown]
  - Drug ineffective [Unknown]
